FAERS Safety Report 8007566-3 (Version None)
Quarter: 2011Q4

REPORT INFORMATION
  Report Type: 
  Country: None (occurrence: None)
  Receive Date: 20111123
  Receipt Date: 20110805
  Transmission Date: 20120403
  Serious: No
  Sender: FDA-Public Use
  Company Number: 337799

PATIENT
  Age: 66 Year
  Sex: Female

DRUGS (2)
  1. VICTOZA [Suspect]
     Indication: WEIGHT DECREASED
     Dosage: UNK, SUBCUTANEOUS
     Route: 058
     Dates: start: 20110722
  2. VICTOZA [Suspect]
     Indication: GLUCOSE TOLERANCE IMPAIRED
     Dosage: UNK, SUBCUTANEOUS
     Route: 058
     Dates: start: 20110722

REACTIONS (3)
  - INCORRECT ROUTE OF DRUG ADMINISTRATION [None]
  - INJECTION SITE ERYTHEMA [None]
  - INJECTION SITE SWELLING [None]
